FAERS Safety Report 8110400-4 (Version None)
Quarter: 2012Q1

REPORT INFORMATION
  Report Type: 
  Country: None (occurrence: None)
  Receive Date: 20120202
  Receipt Date: 20120124
  Transmission Date: 20120608
  Serious: Yes (Hospitalization)
  Sender: FDA-Public Use
  Company Number: US-BAXTER-2012BH002507

PATIENT
  Sex: Female

DRUGS (2)
  1. VALTREX [Concomitant]
     Indication: HERPES ZOSTER
     Route: 065
     Dates: start: 20120101, end: 20120119
  2. DIANEAL [Suspect]
     Indication: PERITONEAL DIALYSIS
     Route: 033

REACTIONS (4)
  - OVERDOSE [None]
  - NEUROLOGICAL SYMPTOM [None]
  - HERPES ZOSTER [None]
  - FAECALOMA [None]
